FAERS Safety Report 18536600 (Version 3)
Quarter: 2022Q3

REPORT INFORMATION
  Report Type: Spontaneous
  Country: US (occurrence: US)
  Receive Date: 20201124
  Receipt Date: 20220719
  Transmission Date: 20221027
  Serious: Yes (Hospitalization, Other)
  Sender: FDA-Public Use
  Company Number: US-SPECGX-T202002266

PATIENT
  Sex: Female

DRUGS (3)
  1. MORPHINE [Suspect]
     Active Substance: MORPHINE
     Indication: Product used for unknown indication
     Dosage: UNK
     Route: 065
  2. H.P. ACTHAR [Suspect]
     Active Substance: CORTICOTROPIN
     Indication: Systemic lupus erythematosus
     Dosage: 80 UNITS/ML, THREE TIMES A WEEK
     Route: 058
     Dates: start: 201802
  3. H.P. ACTHAR [Suspect]
     Active Substance: CORTICOTROPIN
     Dosage: 80 UNITS/ML, THREE TIMES A WEEK
     Route: 058
     Dates: start: 202106

REACTIONS (18)
  - Clostridium difficile infection [Unknown]
  - Fall [Unknown]
  - Concussion [Unknown]
  - Head injury [Unknown]
  - Haemorrhage [Unknown]
  - Systemic lupus erythematosus [Unknown]
  - Cardiac flutter [Unknown]
  - Overdose [Unknown]
  - Apnoea [Unknown]
  - Pain [Unknown]
  - Contusion [Unknown]
  - Alopecia [Unknown]
  - Depressed mood [Unknown]
  - Muscle spasms [Unknown]
  - Skin lesion [Unknown]
  - Herpes zoster [Unknown]
  - Injection site reaction [Unknown]
  - Product availability issue [Unknown]
